FAERS Safety Report 23902848 (Version 1)
Quarter: 2024Q2

REPORT INFORMATION
  Report Type: Spontaneous
  Country: US (occurrence: US)
  Receive Date: 20240527
  Receipt Date: 20240527
  Transmission Date: 20240715
  Serious: Yes (Hospitalization)
  Sender: FDA-Public Use
  Company Number: US-BRISTOL-MYERS SQUIBB COMPANY-2024-082260

PATIENT
  Age: 68 Year
  Sex: Female
  Weight: 98.88 kg

DRUGS (1)
  1. ONUREG [Suspect]
     Active Substance: AZACITIDINE
     Indication: Acute myeloid leukaemia
     Dosage: 2 WEEKS ON, 2 WEEKS OFF
     Route: 048

REACTIONS (1)
  - Nasopharyngitis [Unknown]
